FAERS Safety Report 10228171 (Version 1)
Quarter: 2014Q2

REPORT INFORMATION
  Report Type: Spontaneous
  Country: DE (occurrence: DE)
  Receive Date: 20140610
  Receipt Date: 20140610
  Transmission Date: 20141212
  Serious: Yes (Other)
  Sender: FDA-Public Use
  Company Number: DE-WATSON-2014-12536

PATIENT
  Age: 32 Year
  Sex: Female

DRUGS (4)
  1. PREDNISOLONE (UNKNOWN) [Suspect]
     Indication: SUSAC^S SYNDROME
     Dosage: 60 MG, DAILY
     Route: 048
  2. METHYLPREDNISOLONE [Concomitant]
     Indication: SUSAC^S SYNDROME
     Dosage: 500 MG, UNKNOWN 5X500 MG
     Route: 042
  3. MYCOPHENYLATE MOFETIL [Concomitant]
     Indication: SUSAC^S SYNDROME
     Dosage: 2000 MG, DAILY
     Route: 065
  4. METHOTREXATE [Concomitant]
     Indication: SUSAC^S SYNDROME
     Dosage: 15 MG, 1/WEEK
     Route: 058

REACTIONS (1)
  - Cushing^s syndrome [Unknown]
